FAERS Safety Report 9905052 (Version 1)
Quarter: 2013Q2

REPORT INFORMATION
  Report Type: Spontaneous
  Country: US (occurrence: None)
  Receive Date: 20130305
  Receipt Date: 20130305
  Transmission Date: 20140414
  Serious: Yes (Hospitalization)
  Sender: FDA-Public Use
  Company Number: 163-21880-12041901

PATIENT
  Age: 52 Year
  Sex: Female

DRUGS (4)
  1. REVLIMID (LENALIDOMIDE) (10 MILLIGRAM, CAPSULES) [Suspect]
     Dosage: 10 MG, QD X 28 DAYS , PO
     Dates: start: 20111224
  2. VALTREX (VALACYCLOVIR HYDROCHLORIDE) (UNKNOWN) [Concomitant]
  3. CITALOPRAM (CITALOPRAM) (UNKNOWN) [Concomitant]
  4. CITALOPRAM (CITALOPRAM) (UNKNOWN) [Concomitant]

REACTIONS (4)
  - Abdominal pain [None]
  - Infection [None]
  - Chills [None]
  - Pyrexia [None]
